FAERS Safety Report 19577329 (Version 1)
Quarter: 2021Q3

REPORT INFORMATION
  Report Type: Spontaneous
  Country: JP (occurrence: JP)
  Receive Date: 20210719
  Receipt Date: 20210719
  Transmission Date: 20211014
  Serious: Yes (Other)
  Sender: FDA-Public Use
  Company Number: JP-PFIZER INC-2021842719

PATIENT
  Age: 75 Year
  Sex: Female
  Weight: 41 kg

DRUGS (11)
  1. AZITHROMYCIN ANHYDROUS. [Suspect]
     Active Substance: AZITHROMYCIN ANHYDROUS
     Dosage: UNK
  2. WARFARIN POTASSIUM [Concomitant]
     Active Substance: WARFARIN POTASSIUM
     Route: 048
  3. PIMOBENDAN [Concomitant]
     Active Substance: PIMOBENDAN
     Route: 048
  4. EPLERENONE. [Concomitant]
     Active Substance: EPLERENONE
     Route: 048
  5. POLAPREZINC [Concomitant]
     Active Substance: POLAPREZINC
     Route: 048
  6. VANCOMYCIN [Suspect]
     Active Substance: VANCOMYCIN
  7. AZOSEMIDE [Concomitant]
     Active Substance: AZOSEMIDE
     Route: 048
  8. TOLVAPTAN [Concomitant]
     Active Substance: TOLVAPTAN
     Route: 048
  9. TAZOBACTAM SODIUM AND PIPERACILLIN SODIUM [Suspect]
     Active Substance: PIPERACILLIN SODIUM\TAZOBACTAM SODIUM
  10. VONOPRAZAN FUMARATE [Concomitant]
     Active Substance: VONOPRAZAN FUMARATE
     Route: 048
  11. BISOPROLOL FUMARATE. [Concomitant]
     Active Substance: BISOPROLOL FUMARATE
     Route: 048

REACTIONS (1)
  - Toxic epidermal necrolysis [Recovered/Resolved]
